FAERS Safety Report 13172301 (Version 1)
Quarter: 2017Q1

REPORT INFORMATION
  Report Type: Spontaneous
  Country: GB (occurrence: GB)
  Receive Date: 20170131
  Receipt Date: 20170131
  Transmission Date: 20170428
  Serious: Yes (Other)
  Sender: FDA-Public Use
  Company Number: GB-ELI_LILLY_AND_COMPANY-GB201701006985

PATIENT

DRUGS (1)
  1. ATOMOXETINE HYDROCHLORIDE. [Suspect]
     Active Substance: ATOMOXETINE HYDROCHLORIDE
     Indication: PRODUCT USED FOR UNKNOWN INDICATION
     Dosage: 100 MG, QD
     Route: 048
     Dates: start: 20161028

REACTIONS (6)
  - Dry mouth [Recovering/Resolving]
  - Abdominal pain upper [Recovering/Resolving]
  - Retching [Recovering/Resolving]
  - Eating disorder [Unknown]
  - Halo vision [Unknown]
  - Dry eye [Recovering/Resolving]
